FAERS Safety Report 4773977-2 (Version None)
Quarter: 2005Q3

REPORT INFORMATION
  Report Type: 
  Country: None (occurrence: None)
  Receive Date: 20050919
  Receipt Date: 20050913
  Transmission Date: 20060218
  Serious: Yes (Other)
  Sender: FDA-Public Use
  Company Number: 200512801BCC

PATIENT
  Sex: Female

DRUGS (1)
  1. BACTINE LIQUID [Suspect]
     Dates: start: 20050701

REACTIONS (2)
  - ACCIDENTAL EXPOSURE [None]
  - CHEMICAL BURNS OF EYE [None]
